FAERS Safety Report 5233355-9 (Version None)
Quarter: 2007Q1

REPORT INFORMATION
  Report Type: 
  Country: None (occurrence: None)
  Receive Date: 20070206
  Receipt Date: 20070206
  Transmission Date: 20070707
  Serious: Yes (Disabling, Other)
  Sender: FDA-Public Use
  Company Number: None

PATIENT
  Age: 28 Year
  Sex: Female
  Weight: 114.76 kg

DRUGS (1)
  1. PAROXETINE [Suspect]
     Indication: ANXIETY
     Dosage: 30MG  DAILT  PO
     Route: 048
     Dates: start: 20060501, end: 20070126

REACTIONS (8)
  - ARRHYTHMIA [None]
  - CARDIAC DISORDER [None]
  - CHILLS [None]
  - DRUG WITHDRAWAL SYNDROME [None]
  - ECONOMIC PROBLEM [None]
  - FEELING ABNORMAL [None]
  - HOT FLUSH [None]
  - PALPITATIONS [None]
